FAERS Safety Report 5783178-7 (Version None)
Quarter: 2008Q2

REPORT INFORMATION
  Report Type: 
  Country: None (occurrence: None)
  Receive Date: 20080624
  Receipt Date: 20080616
  Transmission Date: 20081010
  Serious: Yes (Hospitalization)
  Sender: FDA-Public Use
  Company Number: US-AMGEN-US287872

PATIENT
  Sex: Female

DRUGS (15)
  1. ENBREL [Suspect]
     Indication: RHEUMATOID ARTHRITIS
     Route: 058
     Dates: start: 20021126
  2. PREDNISONE TAB [Suspect]
     Route: 048
     Dates: start: 20020510, end: 20030102
  3. ASPIRIN [Concomitant]
  4. SYNTHROID [Concomitant]
  5. LOPRESSOR [Concomitant]
  6. FOLIC ACID [Concomitant]
  7. PROCRIT [Concomitant]
     Route: 065
  8. METHOTREXATE [Concomitant]
     Route: 030
  9. HUMULIN R [Concomitant]
  10. LIPITOR [Concomitant]
  11. NITROGLYCERIN [Concomitant]
  12. PLAVIX [Concomitant]
  13. LASIX [Concomitant]
  14. ATIVAN [Concomitant]
  15. MORPHINE [Concomitant]

REACTIONS (4)
  - GASTROINTESTINAL HAEMORRHAGE [None]
  - MYOCARDIAL INFARCTION [None]
  - PULMONARY OEDEMA [None]
  - URINARY TRACT INFECTION [None]
